FAERS Safety Report 16325867 (Version 1)
Quarter: 2019Q2

REPORT INFORMATION
  Report Type: Spontaneous
  Country: US (occurrence: US)
  Receive Date: 20190516
  Receipt Date: 20190516
  Transmission Date: 20190711
  Serious: No
  Sender: FDA-Public Use
  Company Number: None

PATIENT
  Age: 50 Year
  Sex: Female
  Weight: 60.75 kg

DRUGS (2)
  1. TALTZ [Suspect]
     Active Substance: IXEKIZUMAB
     Indication: PSORIATIC ARTHROPATHY
     Dosage: ?          OTHER FREQUENCY:1 MONTHLY;?
     Route: 058
     Dates: start: 20180726, end: 20181101
  2. TALTZ [Suspect]
     Active Substance: IXEKIZUMAB
     Indication: PSORIASIS
     Dosage: ?          OTHER FREQUENCY:1 MONTHLY;?
     Route: 058
     Dates: start: 20180726, end: 20181101

REACTIONS (4)
  - Swelling [None]
  - Allergic reaction to excipient [None]
  - Pain [None]
  - Burning sensation [None]

NARRATIVE: CASE EVENT DATE: 20181101
